FAERS Safety Report 8356806-X (Version None)
Quarter: 2012Q2

REPORT INFORMATION
  Report Type: 
  Country: None (occurrence: None)
  Receive Date: 20120514
  Receipt Date: 20100814
  Transmission Date: 20120825
  Serious: No
  Sender: FDA-Public Use
  Company Number: US-TEVA-2010004335

PATIENT
  Sex: Male
  Weight: 68.1 kg

DRUGS (11)
  1. FIORINAL [Concomitant]
     Indication: HEADACHE
  2. NUVIGIL [Suspect]
     Indication: FIBROMYALGIA
     Dosage: 250 MILLIGRAM;
     Route: 048
     Dates: start: 20100630, end: 20100814
  3. ZOLPIDEM [Concomitant]
     Indication: INSOMNIA
  4. WELLBUTRIN [Concomitant]
     Indication: DEPRESSION
  5. FLEXERIL [Concomitant]
     Indication: MUSCULOSKELETAL STIFFNESS
  6. ALLEGRA [Concomitant]
     Indication: SINUS DISORDER
  7. NUVIGIL [Suspect]
     Indication: FATIGUE
     Route: 048
     Dates: start: 20100814, end: 20100814
  8. TYLENOL W/ CODEINE NO. 3 [Concomitant]
     Indication: PAIN
     Dates: start: 20070101
  9. ATIVAN [Concomitant]
     Indication: DEPRESSION
  10. ATIVAN [Concomitant]
     Indication: ANXIETY
  11. ATENOLOL [Concomitant]
     Indication: HYPERTENSION

REACTIONS (5)
  - VISUAL IMPAIRMENT [None]
  - BALANCE DISORDER [None]
  - MENTAL STATUS CHANGES [None]
  - FEAR [None]
  - CHEST PAIN [None]
